FAERS Safety Report 4291389-5 (Version None)
Quarter: 2004Q1

REPORT INFORMATION
  Report Type: 
  Country: None (occurrence: None)
  Receive Date: 20040211
  Receipt Date: 20040204
  Transmission Date: 20041129
  Serious: Yes (Other)
  Sender: FDA-Public Use
  Company Number: PHBS2004US01762

PATIENT
  Age: 62 Year
  Sex: Male

DRUGS (3)
  1. PAMIDRONATE DISODIUM [Suspect]
     Indication: MULTIPLE MYELOMA
     Dosage: 90 MG, QMO
     Dates: start: 19971001, end: 20010301
  2. DEXAMETHASONE [Concomitant]
     Dosage: UNK, UNK
     Dates: start: 19971001, end: 20010301
  3. THALIDOMIDE [Concomitant]
     Dosage: 100 MG, QD

REACTIONS (4)
  - BLOOD CREATININE INCREASED [None]
  - GLOMERULONEPHRITIS FOCAL [None]
  - NEPHROTIC SYNDROME [None]
  - PROTEINURIA [None]
